FAERS Safety Report 9585776 (Version 1)
Quarter: 2013Q4

REPORT INFORMATION
  Report Type: Spontaneous
  Country: FR (occurrence: None)
  Receive Date: 20131001
  Receipt Date: 20131001
  Transmission Date: 20140711
  Serious: Yes (Hospitalization)
  Sender: FDA-Public Use
  Company Number: DSM-2013-00896

PATIENT
  Age: 77 Year
  Sex: Female

DRUGS (5)
  1. ALTEIS [Suspect]
     Indication: PRODUCT USED FOR UNKNOWN INDICATION
     Route: 048
     Dates: start: 201307, end: 20130828
  2. CORTANCYL ( PREDNISONE) (TABLET) (PREDNISONE) [Concomitant]
  3. DIFFU K ( POTASSIUM CHLORIDE) ( CAPSULE) (POTASSIUM CHLORIDE) [Concomitant]
  4. FLECAINE ( FLECAINIDE ACETATE) ( FLECAINIDE ACETATE) [Concomitant]
  5. KARDEGIC ( ACETYLSALICYLATE LYSINE) (ACETYLSALICYLATE LYSINE) [Concomitant]

REACTIONS (5)
  - Diarrhoea [None]
  - Nausea [None]
  - Vomiting [None]
  - Decreased appetite [None]
  - Dehydration [None]
